FAERS Safety Report 9868714 (Version 1)
Quarter: 2014Q1

REPORT INFORMATION
  Report Type: Spontaneous
  Country: US (occurrence: US)
  Receive Date: 20140204
  Receipt Date: 20140204
  Transmission Date: 20141002
  Serious: No
  Sender: FDA-Public Use
  Company Number: US-ENDO PHARMACEUTICALS INC.-METH20130016

PATIENT
  Sex: Male
  Weight: 102.15 kg

DRUGS (1)
  1. METHYLPREDNISOLONE [Suspect]
     Indication: SCIATICA
     Route: 065

REACTIONS (1)
  - Blood glucose increased [Not Recovered/Not Resolved]
